FAERS Safety Report 7370940-2 (Version None)
Quarter: 2011Q1

REPORT INFORMATION
  Report Type: 
  Country: None (occurrence: None)
  Receive Date: 20110324
  Receipt Date: 20110316
  Transmission Date: 20110831
  Serious: No
  Sender: FDA-Public Use
  Company Number: US-BIOGENIDEC-2011BI010278

PATIENT
  Age: 36 Year
  Sex: Female

DRUGS (1)
  1. TYSABRI [Suspect]
     Indication: MULTIPLE SCLEROSIS
     Route: 042
     Dates: start: 20080815

REACTIONS (6)
  - EXCORIATION [None]
  - SINUSITIS [None]
  - HORDEOLUM [None]
  - FALL [None]
  - SUBCUTANEOUS ABSCESS [None]
  - WOUND INFECTION [None]
